FAERS Safety Report 7663582-2 (Version None)
Quarter: 2011Q3

REPORT INFORMATION
  Report Type: 
  Country: None (occurrence: None)
  Receive Date: 20110805
  Receipt Date: 20100728
  Transmission Date: 20111222
  Serious: No
  Sender: FDA-Public Use
  Company Number: US-ABBOTT-10P-163-0660282-00

PATIENT
  Sex: Male
  Weight: 78.088 kg

DRUGS (3)
  1. LISINOPRIL [Concomitant]
     Indication: PRODUCT USED FOR UNKNOWN INDICATION
  2. NIASPAN [Suspect]
     Indication: HYPERLIPIDAEMIA
     Dosage: AT BEDTIME
     Dates: start: 20100601
  3. UNKNOWN MEDICATIONS [Concomitant]
     Indication: BLOOD CHOLESTEROL

REACTIONS (2)
  - FLUSHING [None]
  - PRURITUS GENERALISED [None]
